FAERS Safety Report 4602446-5 (Version None)
Quarter: 2005Q1

REPORT INFORMATION
  Report Type: 
  Country: None (occurrence: None)
  Receive Date: 20050309
  Receipt Date: 20050301
  Transmission Date: 20050727
  Serious: No
  Sender: FDA-Public Use
  Company Number: US-JNJFOC-20050104704

PATIENT
  Age: 45 Year
  Sex: Female
  Weight: 78.02 kg

DRUGS (7)
  1. DURAGESIC-100 [Suspect]
     Route: 062
     Dates: start: 20000101
  2. LORTAB [Concomitant]
     Route: 049
  3. LORTAB [Concomitant]
     Indication: PAIN
     Dosage: 10 MG, 6 IN 1 DAY, AS NEEDED
     Route: 049
  4. CRESTOR [Concomitant]
     Route: 049
  5. ZOLOFT [Concomitant]
     Indication: DEPRESSION
     Route: 049
  6. CELEBREX [Concomitant]
     Indication: INFLAMMATION
     Dosage: 200 MG, 1 IN 1 DAY, OCCASIONALLY
     Route: 049
  7. ALPRAZOLAM [Concomitant]
     Indication: ANXIETY
     Route: 049

REACTIONS (4)
  - APPLICATION SITE DERMATITIS [None]
  - DRUG WITHDRAWAL SYNDROME [None]
  - HYPERHIDROSIS [None]
  - TREMOR [None]
